FAERS Safety Report 12656289 (Version 1)
Quarter: 2016Q3

REPORT INFORMATION
  Report Type: Spontaneous
  Country: US (occurrence: US)
  Receive Date: 20160816
  Receipt Date: 20160816
  Transmission Date: 20161109
  Serious: No
  Sender: FDA-Public Use
  Company Number: US-PERRIGO-15US007221

PATIENT
  Age: 76 Year
  Sex: Female
  Weight: 63.49 kg

DRUGS (3)
  1. LORATADINE. [Suspect]
     Active Substance: LORATADINE
     Indication: SNEEZING
     Dosage: 10 MG, ONCE AT 730 AND 0815
     Route: 048
     Dates: start: 20150709, end: 20150709
  2. LORATADINE. [Suspect]
     Active Substance: LORATADINE
     Indication: UPPER-AIRWAY COUGH SYNDROME
     Dosage: 10 MG, QD
     Route: 048
     Dates: end: 20150708
  3. SYNTHROID [Concomitant]
     Active Substance: LEVOTHYROXINE SODIUM
     Indication: HYPOTHYROIDISM
     Dosage: UNK
     Route: 065
     Dates: start: 2000

REACTIONS (7)
  - Muscle tightness [Recovering/Resolving]
  - Extra dose administered [Recovered/Resolved]
  - Nausea [Recovered/Resolved]
  - Chills [Recovering/Resolving]
  - Gait disturbance [Recovering/Resolving]
  - Pain [Recovering/Resolving]
  - Off label use [Recovered/Resolved]

NARRATIVE: CASE EVENT DATE: 20150709
